FAERS Safety Report 5469528-X (Version None)
Quarter: 2007Q3

REPORT INFORMATION
  Report Type: 
  Country: None (occurrence: None)
  Receive Date: 20070927
  Receipt Date: 20070920
  Transmission Date: 20080115
  Serious: Yes (Life-Threatening, Other)
  Sender: FDA-Public Use
  Company Number: B0485023A

PATIENT
  Age: 55 Year
  Sex: Male
  Weight: 83.7 kg

DRUGS (3)
  1. AVANDIA [Suspect]
     Indication: DRUG USE FOR UNKNOWN INDICATION
     Dosage: 1TAB UNKNOWN
     Route: 048
     Dates: start: 20000101, end: 20070121
  2. DIAMICRON [Concomitant]
     Dosage: 60MG PER DAY
     Route: 048
     Dates: start: 20000101
  3. ZOCOR [Concomitant]
     Dosage: 20MG AT NIGHT
     Route: 048
     Dates: start: 20000101

REACTIONS (1)
  - MYOCARDIAL INFARCTION [None]
